FAERS Safety Report 14301058 (Version 1)
Quarter: 2017Q4

REPORT INFORMATION
  Report Type: Report from Study
  Country: JP (occurrence: JP)
  Receive Date: 20171219
  Receipt Date: 20171219
  Transmission Date: 20180321
  Serious: Yes (Hospitalization)
  Sender: FDA-Public Use
  Company Number: JP-DSJP-DSJ-2017-154056

PATIENT

DRUGS (55)
  1. EDOXABAN [Suspect]
     Active Substance: EDOXABAN TOSYLATE
     Dosage: 60 MG, QD
     Route: 048
     Dates: start: 20170129
  2. PRAZAXA [Concomitant]
     Active Substance: DABIGATRAN ETEXILATE MESYLATE
     Dosage: 220MG/DAY
     Route: 048
     Dates: end: 20150813
  3. NANADORA [Concomitant]
     Dosage: 150UG/DAY
     Route: 045
     Dates: end: 20150820
  4. KINDAVATE [Concomitant]
     Active Substance: CLOBETASONE BUTYRATE
     Dosage: UNK UNK, BID
     Route: 050
     Dates: end: 20151117
  5. GLYMESASON OINTMENT [Concomitant]
     Dosage: UNK, BID
     Route: 050
     Dates: start: 20151125
  6. XYZAL [Concomitant]
     Active Substance: LEVOCETIRIZINE DIHYDROCHLORIDE
     Dosage: 5MG/DAY
     Route: 048
     Dates: start: 20160212, end: 20170325
  7. TALION                             /01587402/ [Concomitant]
     Active Substance: BEPOTASTINE
     Dosage: 40MG/DAY
     Route: 048
     Dates: start: 20170213, end: 20170325
  8. CEFON                              /00883901/ [Concomitant]
     Dosage: 2G/DAY
     Route: 042
     Dates: start: 20170127, end: 20170128
  9. ACELIO [Concomitant]
     Active Substance: ACETAMINOPHEN
     Dosage: 1000MG/DAY
     Route: 042
     Dates: start: 20170119, end: 20170119
  10. MAGMITT [Concomitant]
     Active Substance: MAGNESIUM OXIDE
     Dosage: 1320MG/DAY
     Route: 048
  11. LYRICA [Concomitant]
     Active Substance: PREGABALIN
     Dosage: 100MG/DAY
     Route: 048
     Dates: end: 20150824
  12. RINDERON VG [Concomitant]
     Active Substance: BETAMETHASONE VALERATE\GENTAMICIN SULFATE
     Dosage: 10G/DAY
     Route: 050
     Dates: start: 20151109, end: 20151125
  13. CEFON                              /00883901/ [Concomitant]
     Dosage: 2G/DAY
     Route: 042
     Dates: start: 20170120, end: 20170120
  14. PRIMPERAN [Concomitant]
     Active Substance: METOCLOPRAMIDE HYDROCHLORIDE
     Dosage: 1DF/DAY
     Route: 042
     Dates: start: 20170119, end: 20170119
  15. EDOXABAN [Suspect]
     Active Substance: EDOXABAN TOSYLATE
     Indication: ATRIAL FIBRILLATION
     Dosage: 60 MG, QD
     Route: 048
     Dates: start: 20150814, end: 20151220
  16. MUCOSAL                            /00546002/ [Concomitant]
     Dosage: 45MG/DAY
     Route: 048
     Dates: end: 20160908
  17. PRANLUKAST [Concomitant]
     Active Substance: PRANLUKAST
     Dosage: 450MG/DAY
     Route: 048
  18. BORRAZA-G [Concomitant]
     Active Substance: LIDOCAINE\TRIBENOSIDE
     Dosage: 2.4G/DAY
     Route: 050
  19. CEFAZOLIN SODIUM. [Concomitant]
     Active Substance: CEFAZOLIN SODIUM
     Dosage: 1G/DAY
     Route: 042
     Dates: start: 20151109, end: 20151109
  20. HAINOSANKYUTO [Concomitant]
     Dosage: 3DF/DAY
     Route: 048
     Dates: start: 20151118, end: 20161222
  21. AMLODIPINE                         /00972402/ [Concomitant]
     Active Substance: AMLODIPINE BESYLATE
     Dosage: 5MG/DAY
     Route: 048
     Dates: start: 20170526
  22. ATARAX-P                           /00058402/ [Concomitant]
     Active Substance: HYDROXYZINE HYDROCHLORIDE
     Dosage: 50MG/DAY
     Route: 048
     Dates: start: 20160212, end: 20170316
  23. CEFON                              /00883901/ [Concomitant]
     Dosage: 1G/DAY
     Route: 042
     Dates: start: 20170119, end: 20170119
  24. EDOXABAN [Suspect]
     Active Substance: EDOXABAN TOSYLATE
     Dosage: 60 MG, QD
     Route: 048
     Dates: start: 20151222, end: 20170118
  25. LANSOPRAZOLE. [Concomitant]
     Active Substance: LANSOPRAZOLE
     Dosage: 15MG/DAY
     Route: 048
  26. NIZORAL [Concomitant]
     Active Substance: KETOCONAZOLE
     Dosage: UNK UNK, BID
     Route: 050
     Dates: end: 20151117
  27. ANTEBATE [Concomitant]
     Active Substance: BETAMETHASONE DIPROPIONATE
     Dosage: UNK UNK, BID
     Route: 050
     Dates: start: 20151118
  28. ROPION [Concomitant]
     Active Substance: FLURBIPROFEN AXETIL
     Dosage: 50MG/DAY
     Route: 042
     Dates: start: 20151221, end: 20151221
  29. REBAMIPIDE [Concomitant]
     Active Substance: REBAMIPIDE
     Dosage: 300MG/DAY
     Route: 048
     Dates: start: 20170330, end: 20170405
  30. NITOROL [Concomitant]
     Active Substance: ISOSORBIDE DINITRATE
     Dosage: 10ML/DAY
     Route: 042
     Dates: start: 20170127, end: 20170127
  31. ENALAPRIL MALEATE. [Concomitant]
     Active Substance: ENALAPRIL MALEATE
     Dosage: 5MG/DAY
     Route: 048
  32. PATANOL [Concomitant]
     Active Substance: OLOPATADINE HYDROCHLORIDE
     Dosage: UNK UNK, QID
     Route: 047
  33. FLUMETHOLON [Concomitant]
     Active Substance: FLUOROMETHOLONE
     Dosage: UNK UNK, QID
     Route: 047
  34. EKSALB [Concomitant]
     Dosage: UNK UNK, BID
     Route: 050
  35. SATOSALBE [Concomitant]
     Active Substance: ZINC OXIDE
     Dosage: UNK UNK, BID
     Route: 050
     Dates: start: 20151125
  36. OMEPRAZOLE                         /00661202/ [Concomitant]
     Active Substance: OMEPRAZOLE SODIUM
     Dosage: 40MG/DAY
     Route: 042
     Dates: start: 20170127, end: 20170128
  37. EDOXABAN [Suspect]
     Active Substance: EDOXABAN TOSYLATE
     Dosage: 60 MG, QD
     Route: 048
     Dates: start: 20170121, end: 20170125
  38. BOSMIN                             /00003901/ [Concomitant]
     Active Substance: EPINEPHRINE
     Dosage: 1ML/DAY
     Route: 045
     Dates: start: 20160104, end: 20160104
  39. ATORVASTATIN                       /01326102/ [Concomitant]
     Active Substance: ATORVASTATIN
     Dosage: 10MG/DAY
     Route: 048
  40. FLUTICASONE. [Concomitant]
     Active Substance: FLUTICASONE
     Dosage: 100UG/DAY
     Route: 045
     Dates: start: 20150821
  41. HIRUDOID [Concomitant]
     Active Substance: GLYCOSAMINOGLYCANS
     Dosage: UNK UNK, BID
     Route: 050
  42. AMLODIPINE                         /00972402/ [Concomitant]
     Active Substance: AMLODIPINE BESYLATE
     Dosage: 2.5MG/DAY
     Route: 048
     Dates: start: 20160701, end: 20170525
  43. FEXOFENADINE HYDROCHLORIDE. [Concomitant]
     Active Substance: FEXOFENADINE HYDROCHLORIDE
     Dosage: 120MG/DAY
     Route: 048
     Dates: start: 20160104
  44. AMBROXOL HYDROCHLORIDE [Concomitant]
     Active Substance: AMBROXOL HYDROCHLORIDE
     Dosage: 45MG/DAY
     Route: 048
     Dates: start: 20161102
  45. ASTOMIN                            /00426502/ [Concomitant]
     Active Substance: DIMEMORFAN PHOSPHATE
     Dosage: 60MG/DAY
     Route: 048
     Dates: start: 20170330, end: 20170405
  46. CARBOCISTEINE [Concomitant]
     Active Substance: CARBOCYSTEINE
     Dosage: 750MG/DAY
     Route: 048
     Dates: start: 20170330, end: 20170405
  47. ROPION [Concomitant]
     Active Substance: FLURBIPROFEN AXETIL
     Dosage: 5ML/DAY
     Route: 042
     Dates: start: 20170127, end: 20170127
  48. MIYA-BM [Concomitant]
     Active Substance: CLOSTRIDIUM BUTYRICUM SPORES STRAIN M-55
     Dosage: 6DF/DAY
     Route: 048
     Dates: start: 20160909
  49. FERROUS CITRATE NA [Concomitant]
     Active Substance: SODIUM FERROUS CITRATE
     Dosage: 100MG/DAY
     Route: 048
     Dates: start: 20170303
  50. CALONAL [Concomitant]
     Active Substance: ACETAMINOPHEN
     Dosage: 2000MG/DAY
     Route: 048
     Dates: start: 20161231, end: 20170120
  51. ACETATE MAINTENANCE SOLUTION 3G HK [Concomitant]
     Dosage: 1000ML/DAY
     Route: 042
     Dates: start: 20170119, end: 20170119
  52. NORVASC [Concomitant]
     Active Substance: AMLODIPINE BESYLATE
     Dosage: 5MG/DAY
     Route: 048
     Dates: end: 20160630
  53. PONSTEL [Concomitant]
     Active Substance: MEFENAMIC ACID
     Dosage: 750MG/DAY
     Route: 048
     Dates: start: 20150825, end: 20150907
  54. ANTEBATE [Concomitant]
     Active Substance: BETAMETHASONE DIPROPIONATE
     Dosage: UNK UNK, BID
     Route: 050
     Dates: start: 20151118
  55. GABEXATE MESILATE [Concomitant]
     Active Substance: GABEXATE MESYLATE
     Dosage: 400MG/DAY
     Route: 042
     Dates: start: 20170127, end: 20170128

REACTIONS (6)
  - Neoplasm skin [Recovered/Resolved]
  - Bronchitis [Recovered/Resolved]
  - Anaemia [Recovered/Resolved]
  - Cholecystitis [Recovered/Resolved]
  - Haemorrhoidal haemorrhage [Recovered/Resolved]
  - Conjunctival haemorrhage [Recovered/Resolved]

NARRATIVE: CASE EVENT DATE: 20161128
